FAERS Safety Report 22592065 (Version 1)
Quarter: 2023Q2

REPORT INFORMATION
  Report Type: Report from Study
  Country: CA (occurrence: CA)
  Receive Date: 20230612
  Receipt Date: 20230612
  Transmission Date: 20230721
  Serious: Yes (Other)
  Sender: FDA-Public Use
  Company Number: CA-GILEAD-2022-0587760

PATIENT
  Age: 68 Year
  Sex: Female

DRUGS (141)
  1. SACITUZUMAB GOVITECAN-HZIY [Suspect]
     Active Substance: SACITUZUMAB GOVITECAN-HZIY
     Indication: Triple negative breast cancer
     Dosage: 714 MG, C1D1, C2 D8 ( DELAYED DOSE) 10MG/KG
     Route: 042
     Dates: start: 20220622
  2. SACITUZUMAB GOVITECAN-HZIY [Suspect]
     Active Substance: SACITUZUMAB GOVITECAN-HZIY
     Dosage: 8 MG/KG ( 619MG )
     Route: 042
  3. SACITUZUMAB GOVITECAN-HZIY [Suspect]
     Active Substance: SACITUZUMAB GOVITECAN-HZIY
     Dosage: 774 MG
     Route: 042
     Dates: start: 20220721, end: 20220721
  4. SACITUZUMAB GOVITECAN-HZIY [Suspect]
     Active Substance: SACITUZUMAB GOVITECAN-HZIY
     Dosage: 619 MG
     Route: 042
     Dates: start: 20220622
  5. SACITUZUMAB GOVITECAN-HZIY [Suspect]
     Active Substance: SACITUZUMAB GOVITECAN-HZIY
     Dosage: 542 MG
     Route: 042
  6. SACITUZUMAB GOVITECAN-HZIY [Suspect]
     Active Substance: SACITUZUMAB GOVITECAN-HZIY
     Dosage: 619 MG
     Route: 042
  7. SACITUZUMAB GOVITECAN-HZIY [Suspect]
     Active Substance: SACITUZUMAB GOVITECAN-HZIY
     Dosage: DAY 1, DAY 8
     Route: 042
     Dates: start: 20220825, end: 20220901
  8. SACITUZUMAB GOVITECAN-HZIY [Suspect]
     Active Substance: SACITUZUMAB GOVITECAN-HZIY
     Dosage: DAY 1,  LATE
     Route: 042
     Dates: start: 20220922
  9. SACITUZUMAB GOVITECAN-HZIY [Suspect]
     Active Substance: SACITUZUMAB GOVITECAN-HZIY
     Dosage: 542 MG
     Route: 042
     Dates: start: 20221020
  10. SACITUZUMAB GOVITECAN-HZIY [Suspect]
     Active Substance: SACITUZUMAB GOVITECAN-HZIY
     Dosage: 567 MG
     Route: 042
  11. SACITUZUMAB GOVITECAN-HZIY [Suspect]
     Active Substance: SACITUZUMAB GOVITECAN-HZIY
     Dosage: 542 MG
     Route: 042
     Dates: start: 20221223
  12. SACITUZUMAB GOVITECAN-HZIY [Suspect]
     Active Substance: SACITUZUMAB GOVITECAN-HZIY
     Dosage: 560 MG
     Route: 042
  13. SACITUZUMAB GOVITECAN-HZIY [Suspect]
     Active Substance: SACITUZUMAB GOVITECAN-HZIY
     Dosage: 560 MG
     Route: 042
     Dates: start: 20230101
  14. SACITUZUMAB GOVITECAN-HZIY [Suspect]
     Active Substance: SACITUZUMAB GOVITECAN-HZIY
     Dosage: UNSPECIFIED CYCLE D1, D8
     Route: 042
     Dates: start: 20230126, end: 20230216
  15. SACITUZUMAB GOVITECAN-HZIY [Suspect]
     Active Substance: SACITUZUMAB GOVITECAN-HZIY
     Dosage: 560 MG
     Route: 042
     Dates: start: 20220622
  16. SACITUZUMAB GOVITECAN-HZIY [Suspect]
     Active Substance: SACITUZUMAB GOVITECAN-HZIY
     Dosage: 560 MG
     Route: 042
     Dates: start: 20230316
  17. SACITUZUMAB GOVITECAN-HZIY [Suspect]
     Active Substance: SACITUZUMAB GOVITECAN-HZIY
     Dosage: 480 MG
     Route: 042
     Dates: start: 20230316
  18. PERINDOPRIL [Concomitant]
     Active Substance: PERINDOPRIL
     Dosage: 2 MG
  19. PERINDOPRIL [Concomitant]
     Active Substance: PERINDOPRIL
     Dosage: 2 MG
  20. PERINDOPRIL [Concomitant]
     Active Substance: PERINDOPRIL
     Dosage: 2 MG ORAL
  21. PERINDOPRIL [Concomitant]
     Active Substance: PERINDOPRIL
     Dosage: 2 MG
  22. PERINDOPRIL [Concomitant]
     Active Substance: PERINDOPRIL
     Dosage: 2 MG PO
  23. PERINDOPRIL [Concomitant]
     Active Substance: PERINDOPRIL
     Dosage: 2 MG ORAL
  24. PERINDOPRIL [Concomitant]
     Active Substance: PERINDOPRIL
     Dosage: 2 MG
  25. PERINDOPRIL [Concomitant]
     Active Substance: PERINDOPRIL
     Dosage: 2 MG
  26. PERINDOPRIL [Concomitant]
     Active Substance: PERINDOPRIL
     Dosage: 2 MG
  27. PERINDOPRIL [Concomitant]
     Active Substance: PERINDOPRIL
     Dosage: 2 MG
  28. PERINDOPRIL [Concomitant]
     Active Substance: PERINDOPRIL
     Dosage: 2 MG
  29. ROSUVASTATIN [Concomitant]
     Active Substance: ROSUVASTATIN
     Dosage: 5 MG
  30. ROSUVASTATIN [Concomitant]
     Active Substance: ROSUVASTATIN
     Dosage: 5 MG
  31. ROSUVASTATIN [Concomitant]
     Active Substance: ROSUVASTATIN
     Dosage: 5 MG ORAL
  32. ROSUVASTATIN [Concomitant]
     Active Substance: ROSUVASTATIN
     Dosage: 5 MG
  33. ROSUVASTATIN [Concomitant]
     Active Substance: ROSUVASTATIN
     Dosage: 5 MG
  34. ROSUVASTATIN [Concomitant]
     Active Substance: ROSUVASTATIN
     Dosage: 5 MG ORAL
  35. ROSUVASTATIN [Concomitant]
     Active Substance: ROSUVASTATIN
     Dosage: 5 MG
  36. ROSUVASTATIN [Concomitant]
     Active Substance: ROSUVASTATIN
     Dosage: 5 MG
  37. ROSUVASTATIN [Concomitant]
     Active Substance: ROSUVASTATIN
     Dosage: 5 MG
  38. ROSUVASTATIN [Concomitant]
     Active Substance: ROSUVASTATIN
     Dosage: 5 MG
  39. ZOPICLONE [Concomitant]
     Active Substance: ZOPICLONE
     Dosage: 7.5 MG
  40. ZOPICLONE [Concomitant]
     Active Substance: ZOPICLONE
     Dosage: 7.5 MG
  41. ZOPICLONE [Concomitant]
     Active Substance: ZOPICLONE
     Dosage: 7.5 MG ORAL
  42. ZOPICLONE [Concomitant]
     Active Substance: ZOPICLONE
     Dosage: 7.5 MG
  43. ZOPICLONE [Concomitant]
     Active Substance: ZOPICLONE
     Dosage: 7.5 MG
  44. ZOPICLONE [Concomitant]
     Active Substance: ZOPICLONE
     Dosage: 7.5 MG ORAL
  45. ZOPICLONE [Concomitant]
     Active Substance: ZOPICLONE
     Dosage: 7.5 MG
  46. ZOPICLONE [Concomitant]
     Active Substance: ZOPICLONE
     Dosage: 7.5 MG
  47. ZOPICLONE [Concomitant]
     Active Substance: ZOPICLONE
     Dosage: 7.5 MG
  48. ZOPICLONE [Concomitant]
     Active Substance: ZOPICLONE
     Dosage: 7.5 MG
  49. VITAMIN D NOS [Concomitant]
     Active Substance: VITAMIN D NOS
     Dosage: 2000IU
  50. ACETAMINOPHEN [Concomitant]
     Active Substance: ACETAMINOPHEN
     Dosage: 650 MG (PRE-MEDICATION PRIOR TO TRODELVY)
  51. ACETAMINOPHEN [Concomitant]
     Active Substance: ACETAMINOPHEN
     Dosage: 650 MG (PRE-MEDICATION PRIOR TO TRODELVY)
  52. ACETAMINOPHEN [Concomitant]
     Active Substance: ACETAMINOPHEN
     Dosage: 650 MG ORAL (PRE-MEDICATION PRIOR TO TRODELVY)
  53. ACETAMINOPHEN [Concomitant]
     Active Substance: ACETAMINOPHEN
     Dosage: 650 MG ORAL (PRE-MEDICATION PRIOR TO TRODELVY)
  54. ACETAMINOPHEN [Concomitant]
     Active Substance: ACETAMINOPHEN
     Dosage: 650 MG (PRE-MEDICATION PRIOR TO TRODELVY)
  55. ACETAMINOPHEN [Concomitant]
     Active Substance: ACETAMINOPHEN
     Dosage: 650 MG PO (PRE-MEDICATION PRIOR TO TRODELVY)
  56. ACETAMINOPHEN [Concomitant]
     Active Substance: ACETAMINOPHEN
     Dosage: 650 MG PO (PRE-MEDICATION PRIOR TO TRODELVY)
  57. ACETAMINOPHEN [Concomitant]
     Active Substance: ACETAMINOPHEN
     Dosage: 650 MG PO (PRE-MEDICATION PRIOR TO TRODELVY)
  58. ACETAMINOPHEN [Concomitant]
     Active Substance: ACETAMINOPHEN
     Dosage: 650 MG ORAL (PRE-MEDICATION PRIOR TO TRODELVY)
  59. ACETAMINOPHEN [Concomitant]
     Active Substance: ACETAMINOPHEN
     Dosage: 650 MG ORAL (PRE-MEDICATION PRIOR TO TRODELVY)
  60. ACETAMINOPHEN [Concomitant]
     Active Substance: ACETAMINOPHEN
     Dosage: 650 MG PO (PRE-MEDICATION PRIOR TO TRODELVY)
  61. ACETAMINOPHEN [Concomitant]
     Active Substance: ACETAMINOPHEN
     Dosage: 650 MG PO (PRE-MEDICATION PRIOR TO TRODELVY)
  62. ACETAMINOPHEN [Concomitant]
     Active Substance: ACETAMINOPHEN
     Dosage: 650 MG PO (PRE-MEDICATION PRIOR TO TRODELVY)
  63. ACETAMINOPHEN [Concomitant]
     Active Substance: ACETAMINOPHEN
     Dosage: 650 MG PO (PRE-MEDICATION PRIOR TO TRODELVY)
  64. ACETAMINOPHEN [Concomitant]
     Active Substance: ACETAMINOPHEN
     Dosage: 650 MG PO (PRE-MEDICATION PRIOR TO TRODELVY)
  65. ACETAMINOPHEN [Concomitant]
     Active Substance: ACETAMINOPHEN
     Dosage: 650 MG PO (PRE-MEDICATION PRIOR TO TRODELVY)
  66. ACETAMINOPHEN [Concomitant]
     Active Substance: ACETAMINOPHEN
     Dosage: 650 MG PO (PRE-MEDICATION PRIOR TO TRODELVY)
  67. ACETAMINOPHEN [Concomitant]
     Active Substance: ACETAMINOPHEN
     Dosage: 650 MG PO (PRE-MEDICATION PRIOR TO TRODELVY)
  68. ACETAMINOPHEN [Concomitant]
     Active Substance: ACETAMINOPHEN
     Dosage: 650 MG PO (PRE-MEDICATION PRIOR TO TRODELVY)
  69. ACETAMINOPHEN [Concomitant]
     Active Substance: ACETAMINOPHEN
     Dosage: 650 MG PO (PRE-MEDICATION PRIOR TO TRODELVY)
  70. ACETAMINOPHEN [Concomitant]
     Active Substance: ACETAMINOPHEN
     Dosage: 650 MG PO (PRE-MEDICATION PRIOR TO TRODELVY)
  71. ACETAMINOPHEN [Concomitant]
     Active Substance: ACETAMINOPHEN
     Dosage: 650 MG PO (PRE-MEDICATION PRIOR TO TRODELVY)
  72. ACETAMINOPHEN [Concomitant]
     Active Substance: ACETAMINOPHEN
     Dosage: 650 MG PO (PRE-MEDICATION PRIOR TO TRODELVY)
  73. ACETAMINOPHEN [Concomitant]
     Active Substance: ACETAMINOPHEN
     Dosage: 650 MGPO (PRE-MEDICATION PRIOR TO TRODELVY)
  74. ACETAMINOPHEN [Concomitant]
     Active Substance: ACETAMINOPHEN
     Dosage: 650 MG PO (PRE-MEDICATION PRIOR TO TRODELVY)
  75. ACETAMINOPHEN [Concomitant]
     Active Substance: ACETAMINOPHEN
     Dosage: 60 MG PO (PRE-MEDICATION PRIOR TO TRODELVY)
  76. ACETAMINOPHEN [Concomitant]
     Active Substance: ACETAMINOPHEN
     Dosage: 60 MG PO (PRE-MEDICATION PRIOR TO TRODELVY)
  77. ACETAMINOPHEN [Concomitant]
     Active Substance: ACETAMINOPHEN
     Dosage: 60 MG PO (PRE-MEDICATION PRIOR TO TRODELVY
  78. ACETAMINOPHEN [Concomitant]
     Active Substance: ACETAMINOPHEN
     Dosage: 60 MG PO (PRE-MEDICATION PRIOR TO TRODELVY)
  79. DIPHENHYDRAMINE [Concomitant]
     Active Substance: DIPHENHYDRAMINE
     Dosage: 25 MG (PRE-MEDICATION PRIOR TO TRODELVY)
  80. DIPHENHYDRAMINE [Concomitant]
     Active Substance: DIPHENHYDRAMINE
     Dosage: 25 MG (PRE-MEDICATION PRIOR TO TRODELVY)
  81. DIPHENHYDRAMINE [Concomitant]
     Active Substance: DIPHENHYDRAMINE
     Dosage: 25 MG ORAL (PRE-MEDICATION PRIOR TO TRODELVY)
  82. DIPHENHYDRAMINE [Concomitant]
     Active Substance: DIPHENHYDRAMINE
     Dosage: 25 MG ORAL (PRE-MEDICATION PRIOR TO TRODELVY)
  83. DIPHENHYDRAMINE [Concomitant]
     Active Substance: DIPHENHYDRAMINE
     Dosage: 25 MG (PRE-MEDICATION PRIOR TO TRODELVY)
  84. DIPHENHYDRAMINE [Concomitant]
     Active Substance: DIPHENHYDRAMINE
     Dosage: 25 MG PO (PRE-MEDICATION PRIOR TO TRODELVY)
  85. DIPHENHYDRAMINE [Concomitant]
     Active Substance: DIPHENHYDRAMINE
     Dosage: 25 MG PO (PRE-MEDICATION PRIOR TO TRODELVY)
  86. DIPHENHYDRAMINE [Concomitant]
     Active Substance: DIPHENHYDRAMINE
     Dosage: 25 MG PO (PRE-MEDICATION PRIOR TO TRODELVY)
  87. DIPHENHYDRAMINE [Concomitant]
     Active Substance: DIPHENHYDRAMINE
     Dosage: 25 MG ORAL (PRE-MEDICATION PRIOR TO TRODELVY)
  88. DIPHENHYDRAMINE [Concomitant]
     Active Substance: DIPHENHYDRAMINE
     Dosage: 25 MG ORAL (PRE-MEDICATION PRIOR TO TRODELVY)
  89. DIPHENHYDRAMINE [Concomitant]
     Active Substance: DIPHENHYDRAMINE
     Dosage: 25 MG PO (PRE-MEDICATION PRIOR TO TRODELVY)
  90. DIPHENHYDRAMINE [Concomitant]
     Active Substance: DIPHENHYDRAMINE
     Dosage: 25 MG PO (PRE-MEDICATION PRIOR TO TRODELVY)
  91. DIPHENHYDRAMINE [Concomitant]
     Active Substance: DIPHENHYDRAMINE
     Dosage: 25 MG PO (PRE-MEDICATION PRIOR TO TRODELVY)
  92. DIPHENHYDRAMINE [Concomitant]
     Active Substance: DIPHENHYDRAMINE
     Dosage: 25 MG PO (PRE-MEDICATION PRIOR TO TRODELVY)
  93. DIPHENHYDRAMINE [Concomitant]
     Active Substance: DIPHENHYDRAMINE
     Dosage: 25 MG PO (PRE-MEDICATION PRIOR TO TRODELVY)
  94. DIPHENHYDRAMINE [Concomitant]
     Active Substance: DIPHENHYDRAMINE
     Dosage: 25 MG PO (PRE-MEDICATION PRIOR TO TRODELVY)
  95. DIPHENHYDRAMINE [Concomitant]
     Active Substance: DIPHENHYDRAMINE
     Dosage: 25 MG PO (PRE-MEDICATION PRIOR TO TRODELVY)
  96. DIPHENHYDRAMINE [Concomitant]
     Active Substance: DIPHENHYDRAMINE
     Dosage: 25 MG PO (PRE-MEDICATION PRIOR TO TRODELVY)
  97. DIPHENHYDRAMINE [Concomitant]
     Active Substance: DIPHENHYDRAMINE
     Dosage: 25 MG PO (PRE-MEDICATION PRIOR TO TRODELVY)
  98. DIPHENHYDRAMINE [Concomitant]
     Active Substance: DIPHENHYDRAMINE
     Dosage: 25 MG PO (PRE-MEDICATION PRIOR TO TRODELVY)
  99. DIPHENHYDRAMINE [Concomitant]
     Active Substance: DIPHENHYDRAMINE
     Dosage: 25 MG PO (PRE-MEDICATION PRIOR TO TRODELVY)
  100. DIPHENHYDRAMINE [Concomitant]
     Active Substance: DIPHENHYDRAMINE
     Dosage: 25 MG PO (PRE-MEDICATION PRIOR TO TRODELVY)
  101. DIPHENHYDRAMINE [Concomitant]
     Active Substance: DIPHENHYDRAMINE
     Dosage: 50 MG PO (PRE-MEDICATION PRIOR TO TRODELVY)
  102. DIPHENHYDRAMINE [Concomitant]
     Active Substance: DIPHENHYDRAMINE
     Dosage: 50 MG PO (PRE-MEDICATION PRIOR TO TRODELVY)
  103. DIPHENHYDRAMINE [Concomitant]
     Active Substance: DIPHENHYDRAMINE
     Dosage: 50 MGPO (PRE-MEDICATION PRIOR TO TRODELVY)
  104. DIPHENHYDRAMINE [Concomitant]
     Active Substance: DIPHENHYDRAMINE
     Dosage: 50 MG PO (PRE-MEDICATION PRIOR TO TRODELVY)
  105. DIPHENHYDRAMINE [Concomitant]
     Active Substance: DIPHENHYDRAMINE
     Dosage: 50 MG PO (PRE-MEDICATION PRIOR TO TRODELVY)
  106. DIPHENHYDRAMINE [Concomitant]
     Active Substance: DIPHENHYDRAMINE
     Dosage: 50 MG PO (PRE-MEDICATION PRIOR TO TRODELVY)
  107. DIPHENHYDRAMINE [Concomitant]
     Active Substance: DIPHENHYDRAMINE
     Dosage: 50 MG PO (PRE-MEDICATION PRIOR TO TRODELVY)
  108. DOXORUBICIN [Concomitant]
     Active Substance: DOXORUBICIN
     Dates: start: 20171026, end: 20180315
  109. DEXAMETHASONE [Concomitant]
     Active Substance: DEXAMETHASONE
     Dosage: 12  (MG) MILLIGRAMS ORAL (PRE-MEDICATION PRIOR TO TRODELVY)
  110. DEXAMETHASONE [Concomitant]
     Active Substance: DEXAMETHASONE
     Dosage: 12 (MG) MILLIGRAMS ORAL (PRE-MEDICATION PRIOR TO TRODELVY)
  111. DEXAMETHASONE [Concomitant]
     Active Substance: DEXAMETHASONE
     Dosage: 6 MG PO (PRE-MEDICATION PRIOR TO TRODELVY)
  112. DEXAMETHASONE [Concomitant]
     Active Substance: DEXAMETHASONE
     Dosage: 6 MG PO (PRE-MEDICATION PRIOR TO TRODELVY)
  113. DEXAMETHASONE [Concomitant]
     Active Substance: DEXAMETHASONE
     Dosage: DECADRON 6 MG PO (PRE-MEDICATION PRIOR TO TRODELVY)
  114. DEXAMETHASONE [Concomitant]
     Active Substance: DEXAMETHASONE
     Dosage: DECADRON 6 MG PO (PRE-MEDICATION PRIOR TO TRODELVY)
  115. DEXAMETHASONE [Concomitant]
     Active Substance: DEXAMETHASONE
     Dosage: DECADRON 6 MG PO (PRE-MEDICATION PRIOR TO TRODELVY)
  116. DEXAMETHASONE [Concomitant]
     Active Substance: DEXAMETHASONE
     Dosage: DECADRON 6 MG PO (PRE-MEDICATION PRIOR TO TRODELVY)
  117. DEXAMETHASONE [Concomitant]
     Active Substance: DEXAMETHASONE
     Dosage: DECADRON 6 MG PO (PRE-MEDICATION PRIOR TO TRODELVY)
  118. DEXAMETHASONE [Concomitant]
     Active Substance: DEXAMETHASONE
     Dosage: DECADRON 6 MG PO (PRE-MEDICATION PRIOR TO TRODELVY)
  119. DEXAMETHASONE [Concomitant]
     Active Substance: DEXAMETHASONE
     Dosage: DECADRON 6 MG PO (PRE-MEDICATION PRIOR TO TRODELVY)
  120. DEXAMETHASONE [Concomitant]
     Active Substance: DEXAMETHASONE
     Dosage: DECADRON 6 MG PO (PRE-MEDICATION PRIOR TO TRODELVY)
  121. DEXAMETHASONE [Concomitant]
     Active Substance: DEXAMETHASONE
     Dosage: DECADRON 6 MG PO (PRE-MEDICATION PRIOR TO TRODELVY)
  122. DEXAMETHASONE [Concomitant]
     Active Substance: DEXAMETHASONE
     Dosage: 6 MG PO (PRE-MEDICATION PRIOR TO TRODELVY)
  123. ONDANSETRON [Concomitant]
     Active Substance: ONDANSETRON
     Indication: Premedication
     Dosage: 4 MG ORAL (PRE-MEDICATION PRIOR TO TRODELVY)
  124. ONDANSETRON [Concomitant]
     Active Substance: ONDANSETRON
     Dosage: 4 MG ORAL (PRE-MEDICATION PRIOR TO TRODELVY)
  125. ONDANSETRON [Concomitant]
     Active Substance: ONDANSETRON
     Dosage: 4 MG (PRE-MEDICATION PRIOR TO TRODELVY)
  126. ONDANSETRON [Concomitant]
     Active Substance: ONDANSETRON
     Dosage: 8 MG ORAL (PRE-MEDICATION PRIOR TO TRODELVY)
  127. ONDANSETRON [Concomitant]
     Active Substance: ONDANSETRON
     Dosage: 8 MG ORAL (PRE-MEDICATION PRIOR TO TRODELVY)
  128. ONDANSETRON [Concomitant]
     Active Substance: ONDANSETRON
     Dosage: 8 MG PO (PRE-MEDICATION PRIOR TO TRODELVY)
  129. ONDANSETRON [Concomitant]
     Active Substance: ONDANSETRON
     Dosage: 8 MG PO (PRE-MEDICATION PRIOR TO TRODELVY)
  130. ONDANSETRON [Concomitant]
     Active Substance: ONDANSETRON
     Dosage: 8 MG PO (PRE-MEDICATION PRIOR TO TRODELVY)
  131. ONDANSETRON [Concomitant]
     Active Substance: ONDANSETRON
     Dosage: 8 MG PO (PRE-MEDICATION PRIOR TO TRODELVY)
  132. ONDANSETRON [Concomitant]
     Active Substance: ONDANSETRON
     Dosage: 8 MG PO (PRE-MEDICATION PRIOR TO TRODELVY)
  133. ONDANSETRON [Concomitant]
     Active Substance: ONDANSETRON
     Dosage: 8 MG PO (PRE-MEDICATION PRIOR TO TRODELVY)
  134. ONDANSETRON [Concomitant]
     Active Substance: ONDANSETRON
     Dosage: 8 MG PO (PRE-MEDICATION PRIOR TO TRODELVY)
  135. ONDANSETRON [Concomitant]
     Active Substance: ONDANSETRON
     Dosage: 8 MG PO (PRE-MEDICATION PRIOR TO TRODELVY)
  136. ONDANSETRON [Concomitant]
     Active Substance: ONDANSETRON
     Dosage: 8 MG PO (PRE-MEDICATION PRIOR TO TRODELVY)
  137. ONDANSETRON [Concomitant]
     Active Substance: ONDANSETRON
     Dosage: 8 MG PO (PRE-MEDICATION PRIOR TO TRODELVY)
  138. ONDANSETRON [Concomitant]
     Active Substance: ONDANSETRON
     Dosage: 8 MG PO (PRE-MEDICATION PRIOR TO TRODELVY)
  139. ONDANSETRON [Concomitant]
     Active Substance: ONDANSETRON
     Dosage: 8 MG PO (PRE-MEDICATION PRIOR TO TRODELVY)
  140. ONDANSETRON [Concomitant]
     Active Substance: ONDANSETRON
     Dosage: 8 MG PO (PRE-MEDICATION PRIOR TO TRODELVY)
  141. DECADRON [Concomitant]
     Active Substance: DEXAMETHASONE

REACTIONS (41)
  - Disease progression [Unknown]
  - Candida infection [Not Recovered/Not Resolved]
  - Fatigue [Not Recovered/Not Resolved]
  - Constipation [Not Recovered/Not Resolved]
  - Diarrhoea [Recovered/Resolved]
  - Neutrophil count decreased [Unknown]
  - Weight fluctuation [Not Recovered/Not Resolved]
  - Weight increased [Not Recovered/Not Resolved]
  - Nasopharyngitis [Recovering/Resolving]
  - Oropharyngeal pain [Recovering/Resolving]
  - Nasal congestion [Recovering/Resolving]
  - Weight decreased [Unknown]
  - Skin swelling [Not Recovered/Not Resolved]
  - Weight increased [Unknown]
  - Hypotension [Unknown]
  - Sinusitis [Not Recovered/Not Resolved]
  - Nausea [Unknown]
  - Fatigue [Unknown]
  - Feeling cold [Unknown]
  - Weight fluctuation [Unknown]
  - Weight fluctuation [Not Recovered/Not Resolved]
  - Diarrhoea [Unknown]
  - Palpitations [Not Recovered/Not Resolved]
  - Haemoglobin decreased [Not Recovered/Not Resolved]
  - Neutrophil count decreased [Unknown]
  - Product preparation error [Unknown]
  - Off label use [Unknown]
  - Inappropriate schedule of product administration [Recovered/Resolved]
  - Inappropriate schedule of product administration [Not Recovered/Not Resolved]
  - Inappropriate schedule of product administration [Recovered/Resolved]
  - Product dose omission issue [Unknown]
  - Inappropriate schedule of product administration [Recovered/Resolved]
  - Product dispensing error [Unknown]
  - Extra dose administered [Unknown]
  - Medication error [Recovered/Resolved]
  - Inappropriate schedule of product administration [Unknown]
  - Acne [Not Recovered/Not Resolved]
  - Stomatitis [Not Recovered/Not Resolved]
  - Hypoaesthesia [Unknown]
  - Oedema peripheral [Unknown]
  - Abdominal distension [Unknown]

NARRATIVE: CASE EVENT DATE: 20220101
